FAERS Safety Report 25155181 (Version 1)
Quarter: 2025Q2

REPORT INFORMATION
  Report Type: Spontaneous
  Country: US (occurrence: US)
  Receive Date: 20250403
  Receipt Date: 20250403
  Transmission Date: 20250716
  Serious: Yes (Hospitalization)
  Sender: ANI
  Company Number: US-ANIPHARMA-022236

PATIENT
  Age: 28 Year
  Sex: Female

DRUGS (5)
  1. MISOPROSTOL [Suspect]
     Active Substance: MISOPROSTOL
     Indication: Labour induction
     Route: 067
  2. MISOPROSTOL [Concomitant]
     Active Substance: MISOPROSTOL
     Indication: Labour induction
     Route: 060
     Dates: start: 20250310
  3. PITOCIN [Concomitant]
     Active Substance: OXYTOCIN
     Indication: Labour induction
  4. MISOPROSTOL [Suspect]
     Active Substance: MISOPROSTOL
     Indication: Labour induction
     Route: 060
     Dates: start: 20250311
  5. MISOPROSTOL [Suspect]
     Active Substance: MISOPROSTOL
     Indication: Labour induction
     Route: 060
     Dates: start: 20250311

REACTIONS (2)
  - Therapeutic product effect incomplete [Unknown]
  - Maternal exposure during delivery [Unknown]
